FAERS Safety Report 16382172 (Version 1)
Quarter: 2019Q2

REPORT INFORMATION
  Report Type: Spontaneous
  Country: US (occurrence: US)
  Receive Date: 20190426
  Receipt Date: 20190426
  Transmission Date: 20190711
  Serious: Yes (Hospitalization)
  Sender: FDA-Public Use
  Company Number: None

PATIENT
  Age: 73 Year
  Sex: Female

DRUGS (2)
  1. VERZENIO [Suspect]
     Active Substance: ABEMACICLIB
     Indication: METASTASIS
     Dosage: ?          OTHER DOSE:100MG AM 50MG PM;?
     Route: 048
     Dates: start: 201811
  2. VERZENIO [Suspect]
     Active Substance: ABEMACICLIB
     Indication: BONE CANCER
     Dosage: ?          OTHER DOSE:100MG AM 50MG PM;?
     Route: 048
     Dates: start: 201811

REACTIONS (2)
  - Cystitis [None]
  - Pneumonia [None]

NARRATIVE: CASE EVENT DATE: 201904
